FAERS Safety Report 8359366-2 (Version None)
Quarter: 2012Q2

REPORT INFORMATION
  Report Type: 
  Country: None (occurrence: None)
  Receive Date: 20120514
  Receipt Date: 20120514
  Transmission Date: 20120825
  Serious: Yes (Other)
  Sender: FDA-Public Use
  Company Number: None

PATIENT
  Age: 70 Year
  Sex: Male
  Weight: 84.8226 kg

DRUGS (3)
  1. METHOTREXATE [Concomitant]
  2. FOLIC ACID [Concomitant]
  3. ORENCIA [Suspect]
     Indication: RHEUMATOID ARTHRITIS
     Dosage: 150 MG QW SQ
     Route: 058
     Dates: start: 20120314, end: 20120328

REACTIONS (1)
  - PYREXIA [None]
